FAERS Safety Report 8220621-8 (Version None)
Quarter: 2012Q1

REPORT INFORMATION
  Report Type: 
  Country: None (occurrence: None)
  Receive Date: 20120320
  Receipt Date: 20120312
  Transmission Date: 20120608
  Serious: Yes (Other)
  Sender: FDA-Public Use
  Company Number: JP-ASTELLAS-2012JP001727

PATIENT
  Age: 45 Year
  Sex: Female

DRUGS (7)
  1. PROGRAF [Suspect]
     Indication: IMMUNOSUPPRESSANT DRUG THERAPY
     Dosage: 4.5 MG, UID/QD
     Route: 048
  2. LANSOPRAZOLE [Concomitant]
     Dosage: 15 MG, UNKNOWN/D
     Route: 048
  3. MEDROL [Concomitant]
     Indication: IMMUNOSUPPRESSANT DRUG THERAPY
     Dosage: 4 MG, UID/QD
     Route: 048
  4. COTRIM [Concomitant]
     Dosage: UNK
     Route: 048
  5. UNASYN [Concomitant]
     Dosage: 3 G, UNKNOWN/D
     Route: 041
     Dates: start: 20081030, end: 20081101
  6. PROGRAF [Concomitant]
     Dosage: UNK
     Route: 041
  7. MYCOPHENOLATE MOFETIL (CELLCEPT) [Concomitant]
     Indication: IMMUNOSUPPRESSANT DRUG THERAPY
     Dosage: 500 MG, UID/QD
     Route: 048

REACTIONS (2)
  - IGA NEPHROPATHY [None]
  - TONSILLITIS [None]
